FAERS Safety Report 8268106-7 (Version None)
Quarter: 2012Q2

REPORT INFORMATION
  Report Type: 
  Country: None (occurrence: None)
  Receive Date: 20120409
  Receipt Date: 20120329
  Transmission Date: 20120825
  Serious: Yes (Hospitalization)
  Sender: FDA-Public Use
  Company Number: US-ELI_LILLY_AND_COMPANY-US201202006876

PATIENT
  Sex: Female

DRUGS (10)
  1. SENNA-S                            /01035001/ [Concomitant]
  2. PROTONIX [Concomitant]
  3. MIRALAX [Concomitant]
  4. ASPIRIN [Concomitant]
  5. PROLIA [Concomitant]
     Dosage: 1 DF, UNK
     Dates: start: 20110901
  6. FORTEO [Suspect]
     Indication: OSTEOPOROSIS
     Dosage: 20 UG, QD
     Route: 058
     Dates: start: 20120201
  7. LEVOTHYROXINE SODIUM [Concomitant]
     Indication: THYROID DISORDER
     Dosage: 1 DF, QD
  8. VICODIN [Concomitant]
  9. CALCIUM CARBONATE [Concomitant]
  10. CALCIUM + VITAMIN D [Concomitant]

REACTIONS (8)
  - PAIN [None]
  - DRUG DOSE OMISSION [None]
  - OESOPHAGEAL STENOSIS [None]
  - RETCHING [None]
  - INJECTION SITE ERYTHEMA [None]
  - GASTROOESOPHAGEAL REFLUX DISEASE [None]
  - DUODENAL ULCER [None]
  - INCORRECT PRODUCT STORAGE [None]
